FAERS Safety Report 25465379 (Version 1)
Quarter: 2025Q2

REPORT INFORMATION
  Report Type: Spontaneous
  Country: US (occurrence: US)
  Receive Date: 20250623
  Receipt Date: 20250623
  Transmission Date: 20250717
  Serious: No
  Sender: SANOFI AVENTIS
  Company Number: US-SA-2025SA174521

PATIENT
  Age: 56 Year
  Sex: Female

DRUGS (22)
  1. DUPIXENT [Suspect]
     Active Substance: DUPILUMAB
     Indication: Dermatitis atopic
     Route: 058
     Dates: start: 20221109
  2. PREMPRO [Concomitant]
     Active Substance: ESTROGENS, CONJUGATED\MEDROXYPROGESTERONE ACETATE
  3. FERROUS GLUCONATE [Concomitant]
     Active Substance: FERROUS GLUCONATE
  4. LEVOTHYROXINE [Concomitant]
     Active Substance: LEVOTHYROXINE
  5. PROZAC [Concomitant]
     Active Substance: FLUOXETINE HYDROCHLORIDE
  6. MELATONIN [Concomitant]
     Active Substance: MELATONIN
  7. ESTRADIOL [Concomitant]
     Active Substance: ESTRADIOL
  8. OMEPRAZOLE [Concomitant]
     Active Substance: OMEPRAZOLE
  9. PROGESTERONE [Concomitant]
     Active Substance: PROGESTERONE
  10. VITAMIN B12 [Concomitant]
     Active Substance: CYANOCOBALAMIN
  11. VENTOLIN [Concomitant]
     Active Substance: ALBUTEROL SULFATE
  12. VITAMIN D3 [Concomitant]
     Active Substance: CHOLECALCIFEROL
  13. AJOVY [Concomitant]
     Active Substance: FREMANEZUMAB-VFRM
  14. HYDROCODONE [Concomitant]
     Active Substance: HYDROCODONE
  15. BUDESONIDE [Concomitant]
     Active Substance: BUDESONIDE
  16. FENTANYL [Concomitant]
     Active Substance: FENTANYL
  17. XYZAL [Concomitant]
     Active Substance: LEVOCETIRIZINE DIHYDROCHLORIDE
  18. CLARITIN [Concomitant]
     Active Substance: LORATADINE
  19. Trazon [Concomitant]
  20. DESVENLAFAXINE [Concomitant]
     Active Substance: DESVENLAFAXINE
  21. CALCIUM [Concomitant]
     Active Substance: CALCIUM
  22. CARBIDOPA AND LEVODOPA [Concomitant]
     Active Substance: CARBIDOPA\LEVODOPA

REACTIONS (1)
  - Vision blurred [Unknown]

NARRATIVE: CASE EVENT DATE: 20250618
